FAERS Safety Report 8306684-X (Version None)
Quarter: 2012Q2

REPORT INFORMATION
  Report Type: 
  Country: None (occurrence: None)
  Receive Date: 20120424
  Receipt Date: 20120417
  Transmission Date: 20120825
  Serious: Yes (Hospitalization)
  Sender: FDA-Public Use
  Company Number: US-BAYER-2012-038639

PATIENT
  Age: 35 Year
  Sex: Female

DRUGS (13)
  1. SYMBICORT [Concomitant]
     Dosage: ONE PUFF TWICE DAILY
     Route: 048
     Dates: start: 20111004
  2. ZYRTEC [Concomitant]
     Dosage: UNK
     Dates: start: 20111004
  3. YAZ [Suspect]
     Indication: ACNE
  4. ANAVAR [Concomitant]
     Dosage: UNK
     Dates: start: 20111006
  5. YAZ [Suspect]
     Indication: MENSTRUAL CYCLE MANAGEMENT
  6. VENTOLIN [Concomitant]
     Dosage: UNK UNK, BID
     Route: 048
     Dates: start: 20111004
  7. ZITHROMAX [Concomitant]
     Dosage: UNK
     Dates: start: 20111006
  8. CITALOPRAM HYDROBROMIDE [Concomitant]
     Dosage: 10 MG, UNK
     Route: 048
     Dates: start: 20110916
  9. DROSPIRENONE AND ETHINYL ESTRADIOL [Suspect]
     Dosage: UNK
  10. SYMBICORT [Concomitant]
     Dosage: UNK UNK, BID
     Dates: start: 20111004
  11. LEXAPRO [Concomitant]
     Dosage: 10 MG, DAILY, LONG TERM
  12. CELEXA [Concomitant]
     Dosage: 10 MG, DAILY
     Dates: start: 20110815
  13. AZITHROMYCIN [Concomitant]
     Dosage: 150 MG, UNK
     Route: 048
     Dates: start: 20111004

REACTIONS (2)
  - PULMONARY INFARCTION [None]
  - PULMONARY EMBOLISM [None]
